FAERS Safety Report 23919335 (Version 1)
Quarter: 2024Q2

REPORT INFORMATION
  Report Type: Spontaneous
  Country: ES (occurrence: ES)
  Receive Date: 20240530
  Receipt Date: 20240530
  Transmission Date: 20240716
  Serious: Yes (Hospitalization)
  Sender: FDA-Public Use
  Company Number: None

PATIENT
  Age: 61 Year
  Sex: Male

DRUGS (10)
  1. METFORMIN [Suspect]
     Active Substance: METFORMIN HYDROCHLORIDE
     Indication: Type 2 diabetes mellitus
     Dosage: METFORMINA (1359A)
     Route: 048
     Dates: start: 201110, end: 20240401
  2. MANIDIPINE HYDROCHLORIDE [Concomitant]
     Active Substance: MANIDIPINE HYDROCHLORIDE
     Indication: Product used for unknown indication
     Dosage: MANIDIPINE HYDROCHLORIDE (2841CH)
     Route: 048
  3. ACETYLSALYLICYLIC ACID [Concomitant]
     Indication: Product used for unknown indication
     Dosage: ACETYLSALICALIC ACID (176A)
     Route: 048
  4. DEXKETOPROFEN [Suspect]
     Active Substance: DEXKETOPROFEN
     Indication: Product used for unknown indication
     Dosage: DEXKETOPROFENO (7312A)
     Route: 048
     Dates: start: 20240323, end: 20240401
  5. DIAZEPAM [Concomitant]
     Active Substance: DIAZEPAM
     Indication: Product used for unknown indication
     Dosage: DIAZEPAM (730A)
     Route: 048
  6. LOSARTAN [Suspect]
     Active Substance: LOSARTAN
     Indication: Product used for unknown indication
     Dosage: LOSARTAN (7157A)
     Route: 048
     Dates: start: 2020
  7. CYANOCOBALAMIN [Concomitant]
     Active Substance: CYANOCOBALAMIN
     Indication: Product used for unknown indication
     Dosage: INJECTABLE SOLUTION, 5 AMPOULES OF 2 ML
     Route: 065
  8. ACETAMINOPHEN [Concomitant]
     Active Substance: ACETAMINOPHEN
     Indication: Product used for unknown indication
     Route: 048
     Dates: end: 20240401
  9. PANTOPRAZOLE SODIUM [Concomitant]
     Active Substance: PANTOPRAZOLE SODIUM
     Indication: Product used for unknown indication
     Dosage: PANTOPRAZOL (7275A)
     Route: 048
  10. INSULIN GLARGINE [Suspect]
     Active Substance: INSULIN GLARGINE
     Indication: Type 2 diabetes mellitus
     Route: 058
     Dates: start: 2020

REACTIONS (1)
  - Lactic acidosis [Recovering/Resolving]

NARRATIVE: CASE EVENT DATE: 20240401
